FAERS Safety Report 25033480 (Version 1)
Quarter: 2025Q1

REPORT INFORMATION
  Report Type: Spontaneous
  Country: US (occurrence: US)
  Receive Date: 20250303
  Receipt Date: 20250303
  Transmission Date: 20250409
  Serious: No
  Sender: SANOFI AVENTIS
  Company Number: US-SA-2025SA061391

PATIENT
  Age: 85 Year
  Sex: Female
  Weight: 70.76 kg

DRUGS (2)
  1. REZUROCK [Suspect]
     Active Substance: BELUMOSUDIL
     Indication: Chronic graft versus host disease
     Dosage: 200 MG, QD
     Route: 048
     Dates: start: 20221220
  2. REZUROCK [Suspect]
     Active Substance: BELUMOSUDIL
     Dosage: 200 MG, TIW (ONCE DAILY ON MONDAY, WEDNESDAY)
     Route: 048

REACTIONS (1)
  - Inappropriate schedule of product administration [Unknown]
